FAERS Safety Report 4869865-3 (Version None)
Quarter: 2005Q4

REPORT INFORMATION
  Report Type: 
  Country: None (occurrence: None)
  Receive Date: 20051230
  Receipt Date: 20051222
  Transmission Date: 20060501
  Serious: Yes (Other)
  Sender: FDA-Public Use
  Company Number: GB-MERCK-0512GBR00133

PATIENT
  Age: 81 Year

DRUGS (6)
  1. ZOCOR [Suspect]
     Indication: HYPERCHOLESTEROLAEMIA
     Route: 048
     Dates: start: 20030101, end: 20051209
  2. FERROUS SULFATE [Concomitant]
     Indication: ANAEMIA
     Route: 048
  3. RAMIPRIL [Concomitant]
     Indication: CARDIAC FAILURE
     Route: 048
  4. ASPIRIN [Concomitant]
     Indication: CARDIAC FAILURE
     Route: 048
  5. BUMETANIDE [Concomitant]
     Indication: CARDIAC FAILURE
     Route: 048
  6. QUININE [Concomitant]
     Indication: MUSCLE SPASMS
     Route: 048

REACTIONS (3)
  - BLOOD CREATINE PHOSPHOKINASE INCREASED [None]
  - MYALGIA [None]
  - RENAL IMPAIRMENT [None]
